FAERS Safety Report 9753856 (Version 1)
Quarter: 2013Q4

REPORT INFORMATION
  Report Type: Spontaneous
  Country: US (occurrence: US)
  Receive Date: 20131213
  Receipt Date: 20131213
  Transmission Date: 20140711
  Serious: No
  Sender: FDA-Public Use
  Company Number: US-GILEAD-2010-0027756

PATIENT
  Age: 67 Year
  Sex: Female

DRUGS (14)
  1. LETAIRIS [Suspect]
     Indication: PULMONARY ARTERIAL HYPERTENSION
     Route: 048
     Dates: start: 20100211
  2. PULMICORT [Concomitant]
  3. PREDNISONE [Concomitant]
  4. NEXIUM [Concomitant]
  5. DYAZIDE [Concomitant]
  6. LASIX [Concomitant]
  7. VITAMIN B 6 [Concomitant]
  8. VITAMIN B12 [Concomitant]
  9. POTASSIUM [Concomitant]
  10. LOPRESSOR [Concomitant]
  11. FOLIC ACID [Concomitant]
  12. CALCIUM [Concomitant]
  13. ZINC [Concomitant]
  14. MULTIVITAMIN [Concomitant]

REACTIONS (1)
  - Nasal congestion [Not Recovered/Not Resolved]
